FAERS Safety Report 8213601-X (Version None)
Quarter: 2012Q1

REPORT INFORMATION
  Report Type: 
  Country: None (occurrence: None)
  Receive Date: 20120315
  Receipt Date: 20120306
  Transmission Date: 20120608
  Serious: Yes (Other)
  Sender: FDA-Public Use
  Company Number: US-ASTRAZENECA-2010SE11941

PATIENT
  Age: 60 Year
  Sex: Female

DRUGS (3)
  1. SEROQUEL [Suspect]
     Route: 048
  2. SEROQUEL [Suspect]
     Indication: SLEEP DISORDER
     Route: 048
  3. SEROQUEL [Suspect]
     Route: 048
     Dates: start: 20100101, end: 20100901

REACTIONS (18)
  - NAUSEA [None]
  - POOR QUALITY SLEEP [None]
  - RETCHING [None]
  - DRUG DOSE OMISSION [None]
  - BREAST PAIN [None]
  - CHEST PAIN [None]
  - BREAST CANCER [None]
  - BREAST MASS [None]
  - EAR PAIN [None]
  - ARTHRALGIA [None]
  - NERVOUSNESS [None]
  - ABDOMINAL PAIN UPPER [None]
  - NASOPHARYNGITIS [None]
  - TREMOR [None]
  - INSOMNIA [None]
  - MALAISE [None]
  - OROPHARYNGEAL PAIN [None]
  - INFLUENZA [None]
